FAERS Safety Report 23664960 (Version 1)
Quarter: 2024Q1

REPORT INFORMATION
  Report Type: Spontaneous
  Country: US (occurrence: US)
  Receive Date: 20240322
  Receipt Date: 20240322
  Transmission Date: 20240410
  Serious: Yes (Other)
  Sender: FDA-Public Use
  Company Number: US-PFIZER INC-202400069388

PATIENT
  Age: 57 Year
  Sex: Male
  Weight: 86.18 kg

DRUGS (1)
  1. OXBRYTA [Suspect]
     Active Substance: VOXELOTOR
     Indication: Sickle cell anaemia with crisis
     Dosage: 500 MILLIGRAMS, THREE TIMES A DAY

REACTIONS (2)
  - Sickle cell anaemia with crisis [Unknown]
  - Off label use [Unknown]
